FAERS Safety Report 4430614-4 (Version None)
Quarter: 2004Q3

REPORT INFORMATION
  Report Type: 
  Country: None (occurrence: None)
  Receive Date: 20040819
  Receipt Date: 20040819
  Transmission Date: 20050211
  Serious: Yes (Hospitalization)
  Sender: FDA-Public Use
  Company Number: None

PATIENT
  Sex: Male
  Weight: 100.0635 kg

DRUGS (4)
  1. COUMADIN [Suspect]
     Indication: MITRAL VALVE REPLACEMENT
     Dosage: 3 MG PO QD
     Route: 048
     Dates: start: 20040630
  2. GATIFLOXACIN [Concomitant]
  3. METOPROLOL [Concomitant]
  4. METHADONE HCL [Concomitant]

REACTIONS (1)
  - RECTAL HAEMORRHAGE [None]
